FAERS Safety Report 19812552 (Version 4)
Quarter: 2021Q4

REPORT INFORMATION
  Report Type: Spontaneous
  Country: US (occurrence: US)
  Receive Date: 20210910
  Receipt Date: 20211129
  Transmission Date: 20220303
  Serious: Yes (Other)
  Sender: FDA-Public Use
  Company Number: US-TEVA-2021-US-1950084

PATIENT
  Age: 59 Year
  Sex: Female

DRUGS (2)
  1. AJOVY [Suspect]
     Active Substance: FREMANEZUMAB-VFRM
     Indication: Migraine
     Route: 065
     Dates: start: 20210606
  2. AJOVY [Suspect]
     Active Substance: FREMANEZUMAB-VFRM

REACTIONS (17)
  - Pharyngeal swelling [Recovered/Resolved]
  - Skin lesion [Unknown]
  - Limb injury [Unknown]
  - Near death experience [Unknown]
  - Peripheral swelling [Unknown]
  - Immune system disorder [Unknown]
  - COVID-19 [Recovered/Resolved]
  - Pyrexia [Recovered/Resolved]
  - Pruritus [Not Recovered/Not Resolved]
  - Head discomfort [Unknown]
  - Feeling abnormal [Unknown]
  - Urticaria [Unknown]
  - Feeling hot [Unknown]
  - Rash [Unknown]
  - Ear discomfort [Recovered/Resolved]
  - Pain [Not Recovered/Not Resolved]
  - Drug hypersensitivity [Not Recovered/Not Resolved]

NARRATIVE: CASE EVENT DATE: 20210601
